FAERS Safety Report 10254285 (Version 1)
Quarter: 2014Q2

REPORT INFORMATION
  Report Type: Not Available
  Country: FR (occurrence: FR)
  Receive Date: 20140624
  Receipt Date: 20140624
  Transmission Date: 20141212
  Serious: Yes (Other)
  Sender: FDA-Public Use
  Company Number: FR-BEH-2014043318

PATIENT
  Age: 28 Year
  Sex: Male

DRUGS (5)
  1. PRIVIGEN [Suspect]
     Indication: NEUROMYOTONIA
     Dosage: 11:50 - FIRST VIAL 20 G. 14:40 - SECOND VIAL (SAME LOT).
     Dates: start: 20140531, end: 20140531
  2. CORTANCYL [Concomitant]
     Dosage: 15 MG
  3. LAMOTRIGINE [Concomitant]
     Indication: PARTIAL SEIZURES
  4. SOLUMEDROL [Concomitant]
     Dosage: THE DAYS OF PLASMA EXCHANGE
  5. RITUXIMAB [Concomitant]
     Indication: NEUROMYOTONIA
     Dates: start: 20140530

REACTIONS (3)
  - Muscle contractions involuntary [Recovered/Resolved]
  - Myokymia [Recovered/Resolved]
  - Condition aggravated [Recovered/Resolved]
